FAERS Safety Report 17150064 (Version 2)
Quarter: 2020Q1

REPORT INFORMATION
  Report Type: Report from Study
  Country: US (occurrence: US)
  Receive Date: 20191213
  Receipt Date: 20200213
  Transmission Date: 20200409
  Serious: Yes (Death)
  Sender: FDA-Public Use
  Company Number: US-ROCHE-2072399

PATIENT
  Age: 58 Year
  Sex: Female

DRUGS (2)
  1. RITUXAN [Suspect]
     Active Substance: RITUXIMAB
     Indication: KIDNEY TRANSPLANT REJECTION
     Route: 042
  2. RITUXAN [Suspect]
     Active Substance: RITUXIMAB
     Indication: RENAL TRANSPLANT

REACTIONS (4)
  - Intestinal perforation [Fatal]
  - Off label use [Unknown]
  - Intentional product use issue [Unknown]
  - Sepsis [Fatal]

NARRATIVE: CASE EVENT DATE: 20180720
